FAERS Safety Report 6062883-1 (Version None)
Quarter: 2009Q1

REPORT INFORMATION
  Report Type: 
  Country: None (occurrence: None)
  Receive Date: 20090203
  Receipt Date: 20090128
  Transmission Date: 20090719
  Serious: Yes (Other)
  Sender: FDA-Public Use
  Company Number: B0557211A

PATIENT
  Sex: Female

DRUGS (2)
  1. NIQUITIN CQ CLEAR 21MG [Suspect]
     Route: 062
     Dates: start: 20070113
  2. WARFARIN [Concomitant]

REACTIONS (6)
  - CHOKING [None]
  - EMOTIONAL DISTRESS [None]
  - GLOSSITIS [None]
  - HAEMORRHAGE [None]
  - MOUTH HAEMORRHAGE [None]
  - TONGUE DISORDER [None]
